FAERS Safety Report 8234687-2 (Version None)
Quarter: 2012Q1

REPORT INFORMATION
  Report Type: 
  Country: None (occurrence: None)
  Receive Date: 20120321
  Receipt Date: 20120307
  Transmission Date: 20120608
  Serious: Yes (Hospitalization, Disabling, Other)
  Sender: FDA-Public Use
  Company Number: 2009AL004636

PATIENT
  Age: 51 Year
  Sex: Male
  Weight: 121.564 kg

DRUGS (36)
  1. ZESTORETIC [Concomitant]
  2. NAPROXEN [Concomitant]
  3. TOPROL-XL [Concomitant]
  4. METFORMIN HCL [Concomitant]
  5. AFRIN [Concomitant]
  6. TOPROL-XL [Concomitant]
  7. CIALIS [Concomitant]
  8. VIOXX [Concomitant]
  9. AMBIEN [Concomitant]
  10. COUMADIN [Concomitant]
  11. VICODIN [Concomitant]
  12. ALLEGRA-D 12 HOUR [Concomitant]
  13. COUMADIN [Concomitant]
  14. ENLAPRIL [Concomitant]
  15. METFORMIN HCL [Concomitant]
  16. HYDROCODONE [Concomitant]
  17. CELEBREX [Concomitant]
  18. CEFTIN [Concomitant]
  19. LEXAPRO [Concomitant]
  20. ORUDIS [Concomitant]
  21. ENALAPRIL MALEATE [Concomitant]
  22. TYLENOL [Concomitant]
  23. DIGOXIN [Suspect]
     Dosage: 0.25 MG;QD
     Dates: start: 20030812, end: 20080919
  24. COREG [Concomitant]
  25. ASPIRIN [Concomitant]
  26. SOMA [Concomitant]
  27. ASPIRIN [Concomitant]
  28. WELLBUTRIN [Concomitant]
  29. MEDROL [Concomitant]
  30. ZITHROMAX [Concomitant]
  31. KEFLEX [Concomitant]
  32. CODIMAL [Concomitant]
  33. DECONGESTANT [Concomitant]
  34. AMIODARONE HCL [Concomitant]
  35. VASOTEC [Concomitant]
  36. PACERONE [Concomitant]

REACTIONS (74)
  - INTERVERTEBRAL DISC PROTRUSION [None]
  - POLLAKIURIA [None]
  - LUMBAR RADICULOPATHY [None]
  - INTERVERTEBRAL DISC DEGENERATION [None]
  - MUSCLE SPASMS [None]
  - MYOCARDIAL INFARCTION [None]
  - ARTHRITIS [None]
  - NAUSEA [None]
  - ABDOMINAL DISCOMFORT [None]
  - ABDOMINAL DISTENSION [None]
  - CERUMEN IMPACTION [None]
  - SINUS HEADACHE [None]
  - INJURY [None]
  - JOINT RANGE OF MOTION DECREASED [None]
  - CONDUCTION DISORDER [None]
  - SPINAL OSTEOARTHRITIS [None]
  - LEFT VENTRICULAR HYPERTROPHY [None]
  - ATRIOVENTRICULAR BLOCK FIRST DEGREE [None]
  - BLOOD PRESSURE DECREASED [None]
  - DYSPNOEA EXERTIONAL [None]
  - NASAL CONGESTION [None]
  - BALANCE DISORDER [None]
  - RHINORRHOEA [None]
  - ERECTILE DYSFUNCTION [None]
  - MYOCARDIAL ISCHAEMIA [None]
  - MITRAL VALVE INCOMPETENCE [None]
  - SINUS BRADYCARDIA [None]
  - COUGH [None]
  - CONTUSION [None]
  - VIRAL UPPER RESPIRATORY TRACT INFECTION [None]
  - LEFT VENTRICULAR DYSFUNCTION [None]
  - BRONCHITIS [None]
  - PRODUCTIVE COUGH [None]
  - ANGER [None]
  - EYE INFECTION [None]
  - CONGESTIVE CARDIOMYOPATHY [None]
  - HEADACHE [None]
  - NASOPHARYNGITIS [None]
  - BRADYCARDIA [None]
  - HEART RATE IRREGULAR [None]
  - CARDIOMYOPATHY [None]
  - EAR DISCOMFORT [None]
  - OBESITY [None]
  - EJECTION FRACTION DECREASED [None]
  - BACK PAIN [None]
  - CHEST DISCOMFORT [None]
  - TYPE 2 DIABETES MELLITUS [None]
  - ARRHYTHMIA [None]
  - EPISTAXIS [None]
  - OROPHARYNGEAL PAIN [None]
  - FALL [None]
  - ECONOMIC PROBLEM [None]
  - THERAPY CESSATION [None]
  - CARDIAC FAILURE [None]
  - TRICUSPID VALVE INCOMPETENCE [None]
  - VENTRICULAR HYPOKINESIA [None]
  - EAR PAIN [None]
  - TINNITUS [None]
  - ATRIAL FIBRILLATION [None]
  - FATIGUE [None]
  - WEIGHT DECREASED [None]
  - WEIGHT INCREASED [None]
  - THIRST [None]
  - PULMONARY CONGESTION [None]
  - DIZZINESS [None]
  - HYPOAESTHESIA [None]
  - FEELING ABNORMAL [None]
  - PALPITATIONS [None]
  - ESSENTIAL HYPERTENSION [None]
  - SYNOVIAL CYST [None]
  - INSOMNIA [None]
  - URINE ANALYSIS ABNORMAL [None]
  - LEFT ATRIAL DILATATION [None]
  - DIASTOLIC DYSFUNCTION [None]
